FAERS Safety Report 8608112-3 (Version None)
Quarter: 2012Q3

REPORT INFORMATION
  Report Type: 
  Country: None (occurrence: None)
  Receive Date: 20120821
  Receipt Date: 20120810
  Transmission Date: 20120928
  Serious: Yes (Hospitalization)
  Sender: FDA-Public Use
  Company Number: JP-ASTELLAS-2012US007083

PATIENT
  Age: 76 Year
  Sex: Male

DRUGS (1)
  1. ADENOSCAN [Suspect]
     Indication: PRODUCT USED FOR UNKNOWN INDICATION
     Dosage: UNK
     Route: 042
     Dates: start: 20120301, end: 20120301

REACTIONS (1)
  - ANAPHYLACTIC REACTION [None]
